FAERS Safety Report 8296637-2 (Version None)
Quarter: 2012Q2

REPORT INFORMATION
  Report Type: 
  Country: None (occurrence: None)
  Receive Date: 20120418
  Receipt Date: 20120418
  Transmission Date: 20120825
  Serious: Yes (Other)
  Sender: FDA-Public Use
  Company Number: None

PATIENT
  Age: 79 Year
  Sex: Female
  Weight: 99.79 kg

DRUGS (1)
  1. AMIODARONE HCL [Suspect]
     Indication: HYPERTENSION
     Dosage: 100 MG.
     Route: 048
     Dates: start: 20110516, end: 20120401

REACTIONS (4)
  - FATIGUE [None]
  - ABDOMINAL PAIN UPPER [None]
  - ACTIVITIES OF DAILY LIVING IMPAIRED [None]
  - UNEVALUABLE EVENT [None]
